FAERS Safety Report 19724943 (Version 1)
Quarter: 2021Q3

REPORT INFORMATION
  Report Type: Spontaneous
  Country: US (occurrence: US)
  Receive Date: 20210819
  Receipt Date: 20210819
  Transmission Date: 20211014
  Serious: Yes (Life-Threatening, Hospitalization)
  Sender: FDA-Public Use
  Company Number: US-TEVA-2021-US-1942407

PATIENT
  Age: 71 Year
  Sex: Male

DRUGS (13)
  1. NOREPINEPHRINE. [Suspect]
     Active Substance: NOREPINEPHRINE
     Indication: VASOPLEGIA SYNDROME
     Route: 050
  2. NOREPINEPHRINE. [Suspect]
     Active Substance: NOREPINEPHRINE
     Indication: VASOPLEGIA SYNDROME
     Route: 050
  3. EPINEPHRINE. [Suspect]
     Active Substance: EPINEPHRINE
     Indication: VASOPLEGIA SYNDROME
     Route: 050
  4. EPINEPHRINE. [Suspect]
     Active Substance: EPINEPHRINE
     Route: 050
  5. VASOPRESSIN. [Suspect]
     Active Substance: VASOPRESSIN
     Route: 050
  6. NOREPINEPHRINE. [Suspect]
     Active Substance: NOREPINEPHRINE
     Indication: VASOPLEGIA SYNDROME
     Route: 050
  7. PROPOFOL. [Concomitant]
     Active Substance: PROPOFOL
     Indication: DRUG THERAPY
     Route: 065
  8. EPINEPHRINE. [Suspect]
     Active Substance: EPINEPHRINE
     Route: 050
  9. EPINEPHRINE. [Suspect]
     Active Substance: EPINEPHRINE
     Route: 050
  10. VASOPRESSIN. [Suspect]
     Active Substance: VASOPRESSIN
     Indication: VASOPLEGIA SYNDROME
     Dosage: MULTIPLE BOLUSES OF VASOPRESSIN WERE GIVEN (8 UNITS TOTAL)
     Route: 050
  11. CALCIUM CHLORIDE. [Suspect]
     Active Substance: CALCIUM CHLORIDE
     Indication: VASOPLEGIA SYNDROME
     Route: 065
  12. PHENYLEPHRINE [Suspect]
     Active Substance: PHENYLEPHRINE HYDROCHLORIDE
     Indication: VASOPLEGIA SYNDROME
     Dosage: HE REQUIRED BOLUSES OF VASOPRESSOR PRIOR TO INITIATION OF CPB, FOR A TOTAL OF 450 MCG OF PHENYLEP...
     Route: 050
  13. NOREPINEPHRINE. [Suspect]
     Active Substance: NOREPINEPHRINE
     Indication: VASOPLEGIA SYNDROME
     Route: 050

REACTIONS (1)
  - Drug ineffective [Unknown]
